FAERS Safety Report 6930142-8 (Version None)
Quarter: 2010Q3

REPORT INFORMATION
  Report Type: 
  Country: None (occurrence: None)
  Receive Date: 20100818
  Receipt Date: 20100812
  Transmission Date: 20110219
  Serious: Yes (Hospitalization)
  Sender: FDA-Public Use
  Company Number: US-BRISTOL-MYERS SQUIBB COMPANY-15238439

PATIENT
  Age: 54 Year
  Sex: Female
  Weight: 125 kg

DRUGS (9)
  1. IXABEPILONE [Suspect]
     Indication: BREAST CANCER
     Dosage: INTERRUPTED ON 26FEB2010
     Dates: start: 20091104
  2. CARBOPLATIN [Suspect]
     Indication: BREAST CANCER
     Dosage: INTERRUPTED ON 26FEB2010
     Dates: start: 20091104
  3. TRASTUZUMAB [Suspect]
     Indication: BREAST CANCER
     Dosage: INTERRUPTED ON 14JUL2010
     Route: 042
     Dates: start: 20091104
  4. COUMADIN [Concomitant]
     Route: 048
  5. LASIX [Concomitant]
     Indication: SWELLING
     Dosage: DAILY PRN
  6. NEURONTIN [Concomitant]
     Route: 048
  7. OMEPRAZOLE [Concomitant]
     Route: 048
  8. OXYCODONE [Concomitant]
     Dosage: 1 DF=10/325 UNIT NOS Q6HRS
  9. PAROXETINE [Concomitant]

REACTIONS (1)
  - CHEST PAIN [None]
